FAERS Safety Report 8366855-3 (Version None)
Quarter: 2012Q2

REPORT INFORMATION
  Report Type: 
  Country: None (occurrence: None)
  Receive Date: 20120517
  Receipt Date: 20120508
  Transmission Date: 20120825
  Serious: Yes (Hospitalization)
  Sender: FDA-Public Use
  Company Number: GB-ROCHE-1066732

PATIENT
  Sex: Female
  Weight: 161 kg

DRUGS (1)
  1. MABTHERA [Suspect]
     Indication: RHEUMATOID ARTHRITIS
     Dosage: LAST DSOE PRIOR TO SAE 11 JUN 2009
     Dates: start: 20050905

REACTIONS (1)
  - WRIST FRACTURE [None]
